FAERS Safety Report 9754812 (Version 1)
Quarter: 2013Q4

REPORT INFORMATION
  Report Type: Spontaneous
  Country: US (occurrence: US)
  Receive Date: 20131213
  Receipt Date: 20131213
  Transmission Date: 20140711
  Serious: No
  Sender: FDA-Public Use
  Company Number: US-GLAXOSMITHKLINE-A1006829A

PATIENT
  Age: 44 Year
  Sex: Female

DRUGS (3)
  1. WALGREENS NICOTINE TRANSDERMAL SYSTEM PATCH CLEAR, 21MG [Suspect]
     Indication: EX-TOBACCO USER
     Dates: start: 20121222
  2. WINE [Suspect]
  3. ETHANOL [Suspect]

REACTIONS (3)
  - Amnesia [Recovered/Resolved]
  - Drug interaction [Recovered/Resolved]
  - Drug administration error [Recovered/Resolved]
